FAERS Safety Report 25285670 (Version 1)
Quarter: 2025Q2

REPORT INFORMATION
  Report Type: Report from Study
  Country: US (occurrence: US)
  Receive Date: 20250509
  Receipt Date: 20250509
  Transmission Date: 20250717
  Serious: Yes (Other)
  Sender: JOHNSON AND JOHNSON
  Company Number: US-JNJFOC-20250432177

PATIENT
  Age: 51 Year
  Sex: Female

DRUGS (5)
  1. ESKETAMINE [Suspect]
     Active Substance: ESKETAMINE
     Indication: Depression
     Route: 045
     Dates: start: 20220308, end: 20220308
  2. ESKETAMINE [Suspect]
     Active Substance: ESKETAMINE
     Route: 045
     Dates: start: 20220311, end: 20220929
  3. ESKETAMINE [Suspect]
     Active Substance: ESKETAMINE
     Route: 045
     Dates: start: 20230131, end: 20230131
  4. ESKETAMINE [Suspect]
     Active Substance: ESKETAMINE
     Route: 045
     Dates: start: 20230207, end: 20250307
  5. ESKETAMINE [Suspect]
     Active Substance: ESKETAMINE
     Route: 045
     Dates: start: 20250421, end: 20250421

REACTIONS (2)
  - Sedation [Recovered/Resolved]
  - Dissociation [Recovered/Resolved]

NARRATIVE: CASE EVENT DATE: 20250421
